FAERS Safety Report 12065242 (Version 1)
Quarter: 2016Q1

REPORT INFORMATION
  Report Type: Spontaneous
  Country: US (occurrence: US)
  Receive Date: 20160210
  Receipt Date: 20160210
  Transmission Date: 20160526
  Serious: No
  Sender: FDA-Public Use
  Company Number: US-ALLERGAN-1508843US

PATIENT
  Sex: Female

DRUGS (9)
  1. TREXIMET [Concomitant]
     Active Substance: NAPROXEN SODIUM\SUMATRIPTAN SUCCINATE
     Indication: MIGRAINE
     Dosage: UNK UNK, PRN
  2. MAG OXIDE [Concomitant]
     Active Substance: MAGNESIUM OXIDE
     Indication: MIGRAINE PROPHYLAXIS
     Dosage: UNK UNK, QD
  3. ATENOLOL. [Concomitant]
     Active Substance: ATENOLOL
     Indication: MIGRAINE PROPHYLAXIS
     Dosage: UNK UNK, QD
  4. LYRICA [Concomitant]
     Active Substance: PREGABALIN
     Indication: FIBROMYALGIA
  5. TOPAMAX [Concomitant]
     Active Substance: TOPIRAMATE
     Indication: MIGRAINE PROPHYLAXIS
  6. NAPROXEN. [Concomitant]
     Active Substance: NAPROXEN
     Indication: MIGRAINE PROPHYLAXIS
     Dosage: UNK UNK, QD
  7. BOTOX [Suspect]
     Active Substance: ONABOTULINUMTOXINA
     Indication: MIGRAINE
     Dosage: 200 UNITS, SINGLE
     Route: 030
     Dates: start: 201409, end: 201409
  8. DIAZEPAM. [Concomitant]
     Active Substance: DIAZEPAM
     Indication: ANXIETY
  9. AMITRIPTYLINE [Concomitant]
     Active Substance: AMITRIPTYLINE
     Indication: MIGRAINE PROPHYLAXIS

REACTIONS (9)
  - Swelling face [Recovered/Resolved]
  - Injection site urticaria [Recovered/Resolved]
  - Injection site erythema [Recovered/Resolved]
  - Injection site pruritus [Recovered/Resolved]
  - Nausea [Recovered/Resolved]
  - Swollen tongue [Recovered/Resolved]
  - Feeding disorder [Recovered/Resolved]
  - Malaise [Recovered/Resolved]
  - Lip swelling [Recovered/Resolved]
